FAERS Safety Report 7323138-8 (Version None)
Quarter: 2011Q1

REPORT INFORMATION
  Report Type: 
  Country: None (occurrence: None)
  Receive Date: 20110301
  Receipt Date: 20110222
  Transmission Date: 20110831
  Serious: No
  Sender: FDA-Public Use
  Company Number: JP-PFIZER INC-2011032649

PATIENT
  Age: 85 Year
  Sex: Male

DRUGS (1)
  1. SULPERAZON [Suspect]

REACTIONS (1)
  - NO ADVERSE EVENT [None]
